FAERS Safety Report 7296510-2 (Version None)
Quarter: 2011Q1

REPORT INFORMATION
  Report Type: 
  Country: None (occurrence: None)
  Receive Date: 20110216
  Receipt Date: 20110203
  Transmission Date: 20110831
  Serious: Yes (Other)
  Sender: FDA-Public Use
  Company Number: PHHY2011JP06751

PATIENT
  Age: 60 Year
  Sex: Female

DRUGS (2)
  1. ZOMETA [Suspect]
     Indication: METASTASES TO BONE
     Dosage: UNK
     Route: 042
  2. TRASTUZUMAB [Concomitant]
     Indication: BREAST CANCER
     Route: 042

REACTIONS (6)
  - JAW DISORDER [None]
  - OSTEONECROSIS OF JAW [None]
  - GINGIVAL SWELLING [None]
  - BONE DISORDER [None]
  - GINGIVAL ERYTHEMA [None]
  - PAIN IN JAW [None]
